FAERS Safety Report 8202807-1 (Version None)
Quarter: 2012Q1

REPORT INFORMATION
  Report Type: 
  Country: None (occurrence: None)
  Receive Date: 20120312
  Receipt Date: 20120312
  Transmission Date: 20120608
  Serious: Yes (Hospitalization)
  Sender: FDA-Public Use
  Company Number: None

PATIENT
  Age: 64 Year
  Sex: Male
  Weight: 108.86 kg

DRUGS (2)
  1. LEVITRACETAM XR [Concomitant]
     Dosage: 1
     Route: 048
     Dates: start: 20120117, end: 20120227
  2. LEVETIRACETAM [Suspect]
     Indication: CONVULSION
     Route: 048
     Dates: start: 20120117, end: 20120227

REACTIONS (1)
  - CONVULSION [None]
